FAERS Safety Report 15136483 (Version 1)
Quarter: 2018Q3

REPORT INFORMATION
  Report Type: Spontaneous
  Country: US (occurrence: US)
  Receive Date: 20180712
  Receipt Date: 20180712
  Transmission Date: 20181010
  Serious: Yes (Hospitalization)
  Sender: FDA-Public Use
  Company Number: US-TEVA-2018-US-923390

PATIENT
  Age: 91 Year
  Sex: Male

DRUGS (3)
  1. DUTASTERIDE. [Suspect]
     Active Substance: DUTASTERIDE
     Dates: start: 20170323
  2. ENZALUTAMIDE [Suspect]
     Active Substance: ENZALUTAMIDE
     Dates: start: 201806
  3. ENZALUTAMIDE [Suspect]
     Active Substance: ENZALUTAMIDE
     Dates: start: 20170323, end: 20180621

REACTIONS (1)
  - Retinal artery occlusion [Unknown]

NARRATIVE: CASE EVENT DATE: 20180620
